FAERS Safety Report 4483014-5 (Version None)
Quarter: 2004Q3

REPORT INFORMATION
  Report Type: 
  Country: None (occurrence: None)
  Receive Date: 20040921
  Receipt Date: 20040527
  Transmission Date: 20050211
  Serious: Yes (Other)
  Sender: FDA-Public Use
  Company Number: 163-20785-04050694(0)

PATIENT

DRUGS (3)
  1. THALOMID [Suspect]
     Indication: MALIGNANT MELANOMA
     Dosage: ORAL
     Route: 048
  2. TEMODAR [Suspect]
     Indication: MALIGNANT MELANOMA
     Dosage: ORAL
     Route: 048
  3. DACARBAZINE (DACARBAZINE) (UNKNOWN) [Suspect]
     Indication: MALIGNANT MELANOMA

REACTIONS (1)
  - DISEASE PROGRESSION [None]
